FAERS Safety Report 5144923-7 (Version None)
Quarter: 2006Q4

REPORT INFORMATION
  Report Type: 
  Country: None (occurrence: None)
  Receive Date: 20061107
  Receipt Date: 20061025
  Transmission Date: 20070319
  Serious: Yes (Life-Threatening, Hospitalization, Other)
  Sender: FDA-Public Use
  Company Number: ZA-BAYER-200615029GDS

PATIENT
  Age: 50 Year
  Sex: Male

DRUGS (3)
  1. AVELON [Suspect]
     Indication: PNEUMONIA PRIMARY ATYPICAL
     Route: 042
     Dates: start: 20061016, end: 20061016
  2. INVANZ [Concomitant]
     Indication: PNEUMONIA PRIMARY ATYPICAL
     Route: 065
     Dates: start: 20061001
  3. DIFLUCAN [Concomitant]
     Indication: PNEUMONIA PRIMARY ATYPICAL
     Route: 065
     Dates: start: 20061001

REACTIONS (10)
  - ALANINE AMINOTRANSFERASE INCREASED [None]
  - ASPARTATE AMINOTRANSFERASE INCREASED [None]
  - BLOOD CREATININE INCREASED [None]
  - BLOOD LACTATE DEHYDROGENASE INCREASED [None]
  - BLOOD UREA INCREASED [None]
  - GAMMA-GLUTAMYLTRANSFERASE INCREASED [None]
  - GLOMERULAR FILTRATION RATE DECREASED [None]
  - HEPATIC ENZYME INCREASED [None]
  - RENAL FAILURE ACUTE [None]
  - THROMBOCYTOPENIA [None]
